FAERS Safety Report 10177119 (Version 1)
Quarter: 2014Q2

REPORT INFORMATION
  Report Type: Spontaneous
  Country: US (occurrence: None)
  Receive Date: 20140515
  Receipt Date: 20140515
  Transmission Date: 20141212
  Serious: Yes (Other)
  Sender: FDA-Public Use
  Company Number: None

PATIENT
  Sex: Female
  Weight: 111.13 kg

DRUGS (1)
  1. LOTREL [Suspect]
     Indication: ESSENTIAL HYPERTENSION

REACTIONS (4)
  - Tremor [None]
  - Tremor [None]
  - Hypertension [None]
  - Product substitution issue [None]
